FAERS Safety Report 24646964 (Version 1)
Quarter: 2024Q4

REPORT INFORMATION
  Report Type: Spontaneous
  Country: DE (occurrence: DE)
  Receive Date: 20241121
  Receipt Date: 20241121
  Transmission Date: 20250115
  Serious: Yes (Other)
  Sender: HIKMA
  Company Number: DE-MLMSERVICE-20241106-PI230567-00270-1

PATIENT
  Age: 5 Year
  Sex: Male

DRUGS (14)
  1. HYDROCORTISONE [Suspect]
     Active Substance: HYDROCORTISONE
     Indication: Pneumonia
     Route: 042
  2. HYDROCORTISONE [Suspect]
     Active Substance: HYDROCORTISONE
     Indication: Hypoxia
  3. HYDROCORTISONE [Suspect]
     Active Substance: HYDROCORTISONE
     Indication: Pulmonary oedema
  4. METHYLPREDNISOLONE [Suspect]
     Active Substance: METHYLPREDNISOLONE
     Indication: Pulmonary toxicity
     Dosage: TOTAL OF EIGHT METHYLPREDNISOLONE PULSES
     Route: 065
  5. METHYLPREDNISOLONE [Suspect]
     Active Substance: METHYLPREDNISOLONE
     Indication: Acute respiratory distress syndrome
  6. METHYLPREDNISOLONE [Suspect]
     Active Substance: METHYLPREDNISOLONE
     Indication: Acute respiratory failure
  7. METHYLPREDNISOLONE [Suspect]
     Active Substance: METHYLPREDNISOLONE
     Indication: Respiratory failure
  8. PREDNISOLONE [Suspect]
     Active Substance: PREDNISOLONE
     Indication: Pulmonary toxicity
     Dosage: CONTINUOUS PREDNISOLONE THERAPY AT A DOSE OF 2 MG/KG/D, WHICH COULD ONLY BE TAPERED FROM MONTH 4 ONW
     Route: 048
  9. PREDNISOLONE [Suspect]
     Active Substance: PREDNISOLONE
     Indication: Acute respiratory distress syndrome
  10. PREDNISOLONE [Suspect]
     Active Substance: PREDNISOLONE
     Indication: Acute respiratory failure
  11. PREDNISOLONE [Suspect]
     Active Substance: PREDNISOLONE
     Indication: Respiratory failure
  12. BUSULFAN [Concomitant]
     Active Substance: BUSULFAN
     Indication: Neuroblastoma
     Dosage: DOSAGES WERE ADJUSTED TO THE TOTAL BODY WEIGHT
     Route: 065
  13. BUSULFAN [Concomitant]
     Active Substance: BUSULFAN
     Indication: Metastases to bone marrow
  14. OXYGEN [Concomitant]
     Active Substance: OXYGEN
     Indication: Oxygen therapy
     Dosage: CONTINUOUS VIA A NASAL CANNULA
     Route: 045

REACTIONS (1)
  - Pituitary-dependent Cushing^s syndrome [Unknown]
